FAERS Safety Report 13696408 (Version 1)
Quarter: 2017Q2

REPORT INFORMATION
  Report Type: Spontaneous
  Country: US (occurrence: US)
  Receive Date: 20170627
  Receipt Date: 20170627
  Transmission Date: 20170830
  Serious: Yes (Death, Hospitalization)
  Sender: FDA-Public Use
  Company Number: None

PATIENT
  Age: 11 Year
  Sex: Male
  Weight: 70.6 kg

DRUGS (5)
  1. DEXAMETHASONE. [Suspect]
     Active Substance: DEXAMETHASONE
     Dates: end: 20170610
  2. ONCASPAR [Suspect]
     Active Substance: PEGASPARGASE
     Dates: end: 20170609
  3. VINCRISTINE SULFATE. [Suspect]
     Active Substance: VINCRISTINE SULFATE
     Dates: end: 20170619
  4. METHOTREXATE. [Suspect]
     Active Substance: METHOTREXATE
     Dates: end: 20170605
  5. MITOXANTRONE HYDROCHLORIDE. [Suspect]
     Active Substance: MITOXANTRONE HYDROCHLORIDE
     Dates: end: 20170606

REACTIONS (16)
  - Hyponatraemia [None]
  - Urine output decreased [None]
  - Lactic acidosis [None]
  - Febrile neutropenia [None]
  - Hypotension [None]
  - Neutropenic colitis [None]
  - Hyperglycaemia [None]
  - Bradycardia [None]
  - Diarrhoea [None]
  - Cardiac arrest [None]
  - Clostridium test positive [None]
  - Multiple organ dysfunction syndrome [None]
  - Hyperkalaemia [None]
  - Respiratory failure [None]
  - Agitation [None]
  - Acute kidney injury [None]

NARRATIVE: CASE EVENT DATE: 20170613
